FAERS Safety Report 19767957 (Version 1)
Quarter: 2021Q3

REPORT INFORMATION
  Report Type: Spontaneous
  Country: US (occurrence: US)
  Receive Date: 20210831
  Receipt Date: 20210831
  Transmission Date: 20211014
  Serious: No
  Sender: FDA-Public Use
  Company Number: US-ORGANON-O2108USA001282

PATIENT
  Age: 26 Year
  Sex: Female
  Weight: 70.3 kg

DRUGS (4)
  1. ETONOGESTREL (+) ETHINYL ESTRADIOL [Suspect]
     Active Substance: ETHINYL ESTRADIOL\ETONOGESTREL
     Indication: CONTRACEPTION
     Dosage: 1 RING FOR 3 WEEKS
     Route: 067
     Dates: start: 202106, end: 202106
  2. NUVARING [Suspect]
     Active Substance: ETHINYL ESTRADIOL\ETONOGESTREL
     Indication: CONTRACEPTION
     Dosage: 1 RING FOR 3 WEEKS
     Route: 067
  3. NUVARING [Suspect]
     Active Substance: ETHINYL ESTRADIOL\ETONOGESTREL
     Dosage: 1 RING FOR 3 WEEKS
     Route: 067
     Dates: start: 202106, end: 202108
  4. ANNOVERA [Suspect]
     Active Substance: ETHINYL ESTRADIOL\SEGESTERONE ACETATE
     Dosage: UNK
     Dates: start: 20210806, end: 202108

REACTIONS (6)
  - Product dose omission issue [Unknown]
  - Nausea [Not Recovered/Not Resolved]
  - Headache [Not Recovered/Not Resolved]
  - Abdominal distension [Not Recovered/Not Resolved]
  - Nausea [Not Recovered/Not Resolved]
  - Fatigue [Not Recovered/Not Resolved]

NARRATIVE: CASE EVENT DATE: 202106
